FAERS Safety Report 8167587-7 (Version None)
Quarter: 2012Q1

REPORT INFORMATION
  Report Type: 
  Country: None (occurrence: None)
  Receive Date: 20120227
  Receipt Date: 20120216
  Transmission Date: 20120608
  Serious: Yes (Hospitalization)
  Sender: FDA-Public Use
  Company Number: JP-NAPPMUNDI-MAG-2011-0001990

PATIENT
  Sex: Male
  Weight: 51 kg

DRUGS (8)
  1. OXYCODONE HCL [Suspect]
     Dosage: 30 MG, DAILY
     Route: 048
     Dates: start: 20111205, end: 20111211
  2. MAGNESIUM SULFATE [Concomitant]
     Indication: CONSTIPATION
     Dosage: UNK UNK, PRN
     Route: 048
     Dates: start: 20111109
  3. OXYCODONE HCL [Suspect]
     Dosage: 20 MG, DAILY
     Route: 048
     Dates: start: 20111109
  4. FENTANYL CITRATE [Suspect]
     Dosage: 1 MG, DAILY
     Dates: start: 20111205
  5. NOVAMIN                            /00013301/ [Concomitant]
     Indication: NAUSEA
     Dosage: UNK UNK, PRN
     Route: 048
     Dates: start: 20111109
  6. OXYCODONE HCL [Suspect]
     Indication: CANCER PAIN
     Dosage: 5 MG, PRN
     Route: 048
     Dates: start: 20111107
  7. FENTANYL CITRATE [Suspect]
     Indication: CANCER PAIN
     Dosage: 4 MG, UNK
     Route: 062
     Dates: start: 20111212
  8. OXYCODONE HCL [Suspect]
     Dosage: 10 MG, DAILY
     Route: 048
     Dates: start: 20111107

REACTIONS (4)
  - DECREASED APPETITE [None]
  - CONSTIPATION [None]
  - OESOPHAGEAL CARCINOMA [None]
  - NAUSEA [None]
